FAERS Safety Report 7246230-5 (Version None)
Quarter: 2011Q1

REPORT INFORMATION
  Report Type: 
  Country: None (occurrence: None)
  Receive Date: 20110126
  Receipt Date: 20110119
  Transmission Date: 20110831
  Serious: Yes (Other)
  Sender: FDA-Public Use
  Company Number: B0696041A

PATIENT
  Sex: Male

DRUGS (2)
  1. HYPERTENSION MED [Concomitant]
  2. AVAMYS [Suspect]
     Route: 045

REACTIONS (1)
  - LOSS OF CONSCIOUSNESS [None]
